FAERS Safety Report 8435462-6 (Version None)
Quarter: 2012Q2

REPORT INFORMATION
  Report Type: 
  Country: None (occurrence: None)
  Receive Date: 20120614
  Receipt Date: 20120608
  Transmission Date: 20120825
  Serious: Yes (Other)
  Sender: FDA-Public Use
  Company Number: US-PFIZER INC-2012139847

PATIENT
  Sex: Male
  Weight: 136 kg

DRUGS (3)
  1. HUMULIN 70/30 [Concomitant]
     Indication: DIABETES MELLITUS
     Dosage: 70/30 %, UNK
  2. LIPITOR [Suspect]
     Indication: BLOOD TRIGLYCERIDES INCREASED
  3. LIPITOR [Suspect]
     Indication: BLOOD CHOLESTEROL INCREASED
     Dosage: 40 MG, 1X/DAY
     Route: 048
     Dates: start: 20020101

REACTIONS (2)
  - CORONARY ARTERY DISEASE [None]
  - DIABETIC NEUROPATHY [None]
